FAERS Safety Report 16432851 (Version 1)
Quarter: 2019Q2

REPORT INFORMATION
  Report Type: Spontaneous
  Country: US (occurrence: US)
  Receive Date: 20190614
  Receipt Date: 20190614
  Transmission Date: 20190711
  Serious: Yes (Other)
  Sender: FDA-Public Use
  Company Number: US-JNJFOC-20190609377

PATIENT
  Sex: Male
  Weight: 133.81 kg

DRUGS (1)
  1. RISPERDAL [Suspect]
     Active Substance: RISPERIDONE
     Indication: PRODUCT USED FOR UNKNOWN INDICATION
     Route: 048
     Dates: start: 199806

REACTIONS (6)
  - Breast mass [Unknown]
  - Weight increased [Unknown]
  - Cardiometabolic syndrome [Unknown]
  - Hypertension [Unknown]
  - Breast enlargement [Unknown]
  - Diabetes mellitus [Unknown]

NARRATIVE: CASE EVENT DATE: 1999
